FAERS Safety Report 12990663 (Version 1)
Quarter: 2016Q4

REPORT INFORMATION
  Report Type: Spontaneous
  Country: FR (occurrence: FR)
  Receive Date: 20161201
  Receipt Date: 20161201
  Transmission Date: 20170207
  Serious: Yes (Hospitalization)
  Sender: FDA-Public Use
  Company Number: FR-TEVA-713841ROM

PATIENT
  Age: 13 Year
  Sex: Female

DRUGS (1)
  1. ANTADYS [Suspect]
     Active Substance: FLURBIPROFEN
     Indication: DYSMENORRHOEA
     Dates: start: 201610, end: 201610

REACTIONS (1)
  - Nephritis allergic [Recovered/Resolved]

NARRATIVE: CASE EVENT DATE: 20161014
